FAERS Safety Report 8997948 (Version 3)
Quarter: 2013Q1

REPORT INFORMATION
  Report Type: Spontaneous
  Country: FR (occurrence: FR)
  Receive Date: 20130104
  Receipt Date: 20130130
  Transmission Date: 20140127
  Serious: Yes (Hospitalization)
  Sender: FDA-Public Use
  Company Number: FR-BAYER-2012-134364

PATIENT
  Age: 58 Year
  Sex: Female

DRUGS (21)
  1. GADOVIST [Suspect]
     Dosage: 15 ML, ONCE
     Route: 042
     Dates: start: 20121008, end: 20121008
  2. GADOVIST [Suspect]
     Dosage: 15 ML, UNK
     Route: 042
     Dates: start: 20121016, end: 20121016
  3. MECOBALAMIN [Suspect]
     Dosage: UNK
     Route: 042
     Dates: start: 20121004, end: 20121012
  4. GENTAMICINE [Suspect]
     Dosage: UNK
     Dates: start: 20121010, end: 20121011
  5. INEXIUM [Suspect]
     Dosage: 20 MG, QD
     Route: 048
     Dates: start: 20121004
  6. ORBENINE [Suspect]
     Dosage: 4 G, BID
     Route: 042
     Dates: start: 20121010, end: 20121024
  7. LANTUS [Concomitant]
  8. NOVORAPID [Concomitant]
  9. BROMAZEPAM [Concomitant]
  10. PRAVASTATIN [Concomitant]
     Dosage: 20 MG, QD
  11. KARDEGIC [Concomitant]
     Dosage: 1 DF, QD
  12. TRIATEC [Concomitant]
     Dosage: 1 DF, QD
  13. PARACETAMOL [Concomitant]
  14. CLAFORAN [Concomitant]
     Dosage: 6 G, TID
     Dates: start: 20121003, end: 20121005
  15. ZYVOXID [Concomitant]
     Dosage: 600 MG, BID
     Dates: start: 20121005, end: 20121011
  16. BRISTOPEN [Concomitant]
     Dosage: 4G X 2/4
     Dates: start: 20121010, end: 20121024
  17. TAVANIC [Concomitant]
     Dosage: 500 MG, UNK
  18. RIFAMPICIN [Concomitant]
     Dosage: 300 MG, TID
     Dates: start: 20121024
  19. LOVENOX [Concomitant]
     Dosage: UNK
     Dates: start: 20121004, end: 20121016
  20. IOMERON [Concomitant]
     Dosage: UNK
     Dates: start: 20121001
  21. CALCIPARIN [Concomitant]
     Dosage: UNK
     Dates: end: 20121028

REACTIONS (3)
  - Renal failure [Not Recovered/Not Resolved]
  - Renal tubular necrosis [Not Recovered/Not Resolved]
  - Drug level increased [None]
